FAERS Safety Report 22159002 (Version 3)
Quarter: 2024Q4

REPORT INFORMATION
  Report Type: Report from Study
  Country: US (occurrence: US)
  Receive Date: 20230331
  Receipt Date: 20241129
  Transmission Date: 20250115
  Serious: Yes (Hospitalization, Other)
  Sender: ABBVIE
  Company Number: US-ABBVIE-4709504

PATIENT
  Age: 22 Year
  Sex: Female

DRUGS (2)
  1. CREON [Suspect]
     Active Substance: PANCRELIPASE AMYLASE\PANCRELIPASE LIPASE\PANCRELIPASE PROTEASE
     Indication: Pancreatitis chronic
     Dosage: UNKNOWN
     Route: 048
     Dates: start: 1984
  2. CREON [Suspect]
     Active Substance: PANCRELIPASE AMYLASE\PANCRELIPASE LIPASE\PANCRELIPASE PROTEASE
     Indication: Pancreatitis chronic
     Route: 048
     Dates: start: 1994

REACTIONS (30)
  - Pneumonia [Recovered/Resolved]
  - Memory impairment [Not Recovered/Not Resolved]
  - General physical health deterioration [Not Recovered/Not Resolved]
  - Multiple organ dysfunction syndrome [Unknown]
  - Food refusal [Not Recovered/Not Resolved]
  - Concussion [Recovering/Resolving]
  - Back pain [Not Recovered/Not Resolved]
  - Urinary incontinence [Not Recovered/Not Resolved]
  - Hypoglycaemia [Not Recovered/Not Resolved]
  - Injury [Not Recovered/Not Resolved]
  - Abdominal pain [Unknown]
  - Intestinal prolapse [Unknown]
  - Vomiting [Recovered/Resolved]
  - Sensory disturbance [Unknown]
  - Sepsis [Unknown]
  - Skin laceration [Not Recovered/Not Resolved]
  - Oxygen saturation decreased [Unknown]
  - Gastrooesophageal reflux disease [Unknown]
  - Nausea [Not Recovered/Not Resolved]
  - Renal failure [Recovered/Resolved]
  - Anal incontinence [Unknown]
  - Vomiting [Unknown]
  - Insomnia [Unknown]
  - Steatorrhoea [Unknown]
  - Coma [Recovered/Resolved]
  - Abdominal distension [Not Recovered/Not Resolved]
  - Diarrhoea [Not Recovered/Not Resolved]
  - Flatulence [Not Recovered/Not Resolved]
  - Abnormal faeces [Unknown]
  - Pain [Unknown]

NARRATIVE: CASE EVENT DATE: 20020101
